FAERS Safety Report 4771132-3 (Version None)
Quarter: 2005Q3

REPORT INFORMATION
  Report Type: 
  Country: None (occurrence: None)
  Receive Date: 20050914
  Receipt Date: 20050831
  Transmission Date: 20060218
  Serious: Yes (Hospitalization)
  Sender: FDA-Public Use
  Company Number: 200505260

PATIENT
  Age: 43 Year
  Sex: Female
  Weight: 36 kg

DRUGS (10)
  1. BOTOX [Suspect]
     Indication: MUSCLE SPASTICITY
     Dosage: 500 UNITS ONCE IM
     Route: 030
     Dates: start: 20050614
  2. BOTOX [Suspect]
     Indication: TORTICOLLIS
     Dosage: 500 UNITS ONCE IM
     Route: 030
     Dates: start: 20050614
  3. BOTOX [Suspect]
     Indication: TREMOR
     Dosage: 500 UNITS ONCE IM
     Route: 030
     Dates: start: 20050614
  4. SYNTHROID [Concomitant]
  5. SINGULAIR [Concomitant]
  6. NASACORT [Concomitant]
  7. MAGNESIUM [Concomitant]
  8. ACIDOPHILUS [Concomitant]
  9. CRANBERRY PILLS [Concomitant]
  10. THIAMINE [Concomitant]

REACTIONS (13)
  - ABASIA [None]
  - ANOREXIA [None]
  - AREFLEXIA [None]
  - CHEST PAIN [None]
  - DEHYDRATION [None]
  - DYSPHAGIA [None]
  - DYSPNOEA [None]
  - GASTROOESOPHAGEAL REFLUX DISEASE [None]
  - NAUSEA [None]
  - ORAL INTAKE REDUCED [None]
  - PAIN [None]
  - RETCHING [None]
  - TREMOR [None]
